FAERS Safety Report 4787369-3 (Version None)
Quarter: 2005Q4

REPORT INFORMATION
  Report Type: 
  Country: None (occurrence: None)
  Receive Date: 20051003
  Receipt Date: 20050921
  Transmission Date: 20060501
  Serious: Yes (Hospitalization)
  Sender: FDA-Public Use
  Company Number: 2005132661

PATIENT
  Age: 66 Year
  Sex: Female
  Weight: 61 kg

DRUGS (10)
  1. ALDACTONE [Suspect]
     Indication: ILL-DEFINED DISORDER
     Dosage: 50 MG (50 MG, DAILY, INTERVAL: EVERY DAY), ORAL
     Route: 048
     Dates: end: 20050123
  2. RAMIPRIL [Suspect]
     Indication: ILL-DEFINED DISORDER
     Dosage: TWO DOSE FORMS (TWICE DAILY, INTERVAL: EVERY DAY), ORAL
     Route: 048
     Dates: end: 20050123
  3. ALDALIX (SPIRONOLACTONE, FUROSEMIDE) [Suspect]
     Indication: ILL-DEFINED DISORDER
     Dosage: 80 MG (40 MG, TWICE DAILY, INTERVAL EVERY DAY), ORAL
     Route: 048
     Dates: end: 20050123
  4. MORPHINE CHLORHYDRATE (MORPHINE HYDROCHLORIDE) [Suspect]
     Indication: TOXIC EPIDERMAL NECROLYSIS
     Dosage: INTRAVENOUS
     Route: 042
     Dates: start: 20050117
  5. DISCOTRINE (GLYCERYL TRINITRATE) [Concomitant]
  6. KARDEGIC (ACETYLSALICYLIC LYSINE) [Concomitant]
  7. TRAMADOL HCL [Concomitant]
  8. INSULATARD NPH HUMAN [Concomitant]
  9. DOLIPRANE (PARACETAMOL) [Concomitant]
  10. ATARAX [Concomitant]

REACTIONS (10)
  - BRADYPNOEA [None]
  - DERMATITIS [None]
  - OVERDOSE [None]
  - PULMONARY CONGESTION [None]
  - RENAL FAILURE [None]
  - SKIN NECROSIS [None]
  - SOMNOLENCE [None]
  - SPUTUM RETENTION [None]
  - THIRST [None]
  - TONGUE DRY [None]
